FAERS Safety Report 16648818 (Version 1)
Quarter: 2019Q3

REPORT INFORMATION
  Report Type: Spontaneous
  Country: BR (occurrence: BR)
  Receive Date: 20190730
  Receipt Date: 20190730
  Transmission Date: 20191004
  Serious: Yes (Other)
  Sender: FDA-Public Use
  Company Number: PHHY2019BR148441

PATIENT
  Age: 43 Year
  Sex: Male
  Weight: 98.5 kg

DRUGS (14)
  1. ROSUVASTATIN. [Suspect]
     Active Substance: ROSUVASTATIN
     Indication: BLOOD CHOLESTEROL DECREASED
     Dosage: 10 MG, QD
     Route: 048
  2. XENICAL [Concomitant]
     Active Substance: ORLISTAT
     Indication: WEIGHT LOSS DIET
     Dosage: 120 MG, QD
     Route: 048
  3. CHLORTHALIDONE. [Concomitant]
     Active Substance: CHLORTHALIDONE
     Indication: SWELLING
  4. ARIPIPRAZOLE SANDOZ [Suspect]
     Active Substance: ARIPIPRAZOLE
     Indication: BIPOLAR DISORDER
     Dosage: 10 MG, UNK
     Route: 065
  5. NORIPURUM [Concomitant]
     Active Substance: IRON POLYMALTOSE
     Indication: SERUM FERRITIN DECREASED
     Dosage: UNK UNK, QMO (ONE VIAL)
     Route: 030
  6. BIO C [Concomitant]
     Indication: HYPOVITAMINOSIS
     Dosage: 1000 MG, QD
     Route: 048
  7. CITONEURIN [Concomitant]
     Active Substance: CYANOCOBALAMIN\PYRIDOXINE HYDROCHLORIDE\THIAMINE
     Indication: HYPOVITAMINOSIS
     Dosage: 1 DF, QMO
     Route: 030
  8. CHLORTHALIDONE. [Concomitant]
     Active Substance: CHLORTHALIDONE
     Indication: HEADACHE
     Dosage: 12.5 MG, QD
     Route: 048
  9. ARIPIPRAZOLE SANDOZ [Suspect]
     Active Substance: ARIPIPRAZOLE
     Dosage: 25 MG, UNK
     Route: 065
  10. ESCITALOPRAM [Suspect]
     Active Substance: ESCITALOPRAM OXALATE
     Indication: BIPOLAR DISORDER
     Dosage: 10 MG, QD
     Route: 048
  11. ARIPIPRAZOLE SANDOZ [Suspect]
     Active Substance: ARIPIPRAZOLE
     Dosage: 15 MG, BID
     Route: 048
     Dates: start: 20190620
  12. VITAMIN D [Concomitant]
     Active Substance: VITAMIN D NOS
     Indication: HYPOVITAMINOSIS
     Dosage: 70000 IU, BID
     Route: 048
  13. OMEGA 3 [Concomitant]
     Active Substance: OMEGA-3 FATTY ACIDS
     Indication: BLOOD CHOLESTEROL DECREASED
     Dosage: UNK, QD
     Route: 048
  14. GARLIC. [Concomitant]
     Active Substance: GARLIC
     Indication: NUTRITIONAL SUPPLEMENTATION
     Dosage: 500 MG, BID
     Route: 048

REACTIONS (9)
  - Swelling [Not Recovered/Not Resolved]
  - Lip disorder [Not Recovered/Not Resolved]
  - Speech disorder [Not Recovered/Not Resolved]
  - Memory impairment [Not Recovered/Not Resolved]
  - Tremor [Recovered/Resolved]
  - Tremor [Not Recovered/Not Resolved]
  - Nodule [Unknown]
  - Weight increased [Unknown]
  - Amnesia [Unknown]

NARRATIVE: CASE EVENT DATE: 20190701
